FAERS Safety Report 22320419 (Version 11)
Quarter: 2023Q4

REPORT INFORMATION
  Report Type: Report from Study
  Country: DE (occurrence: DE)
  Receive Date: 20230515
  Receipt Date: 20231027
  Transmission Date: 20240110
  Serious: Yes (Hospitalization, Other)
  Sender: FDA-Public Use
  Company Number: DE-TAKEDA-2023TUS018938

PATIENT
  Age: 80 Year
  Sex: Female

DRUGS (10)
  1. VONICOG ALFA [Suspect]
     Active Substance: VONICOG ALFA
     Indication: Prophylaxis
     Dosage: 2600 INTERNATIONAL UNIT, 1/WEEK
     Route: 042
     Dates: start: 20230201
  2. VONICOG ALFA [Suspect]
     Active Substance: VONICOG ALFA
     Indication: Von Willebrand^s disease
     Dosage: 1300 INTERNATIONAL UNIT, 3/WEEK
     Route: 042
  3. VONICOG ALFA [Suspect]
     Active Substance: VONICOG ALFA
     Dosage: 2600 INTERNATIONAL UNIT, 2/WEEK
     Route: 042
     Dates: start: 202302
  4. VONICOG ALFA [Suspect]
     Active Substance: VONICOG ALFA
     Dosage: 3900 INTERNATIONAL UNIT, 2/WEEK
     Route: 042
  5. VONICOG ALFA [Suspect]
     Active Substance: VONICOG ALFA
     Dosage: 3900 INTERNATIONAL UNIT, 1/WEEK
     Route: 042
  6. VONICOG ALFA [Suspect]
     Active Substance: VONICOG ALFA
     Dosage: 1300 INTERNATIONAL UNIT, 4/WEEK
     Route: 042
  7. VONICOG ALFA [Suspect]
     Active Substance: VONICOG ALFA
     Dosage: 3900 INTERNATIONAL UNIT, 3/WEEK
     Route: 042
  8. VONICOG ALFA [Suspect]
     Active Substance: VONICOG ALFA
     Dosage: 1300 INTERNATIONAL UNIT, 3/WEEK
     Route: 050
  9. CYKLOKAPRON [Concomitant]
     Active Substance: TRANEXAMIC ACID
     Dosage: 3000 MILLIGRAM, QD
     Route: 048
  10. HYDROMORPHONE [Concomitant]
     Active Substance: HYDROMORPHONE
     Dosage: 4 MILLIGRAM, BID
     Route: 065

REACTIONS (10)
  - Atrial fibrillation [Recovered/Resolved]
  - Loss of consciousness [Recovered/Resolved]
  - Intervertebral disc protrusion [Not Recovered/Not Resolved]
  - Cardiac failure [Recovered/Resolved]
  - Dyspnoea exertional [Recovered/Resolved]
  - Mitral valve disease [Not Recovered/Not Resolved]
  - Epistaxis [Recovering/Resolving]
  - Drug intolerance [Recovering/Resolving]
  - Fatigue [Recovering/Resolving]
  - Off label use [Unknown]

NARRATIVE: CASE EVENT DATE: 20230201
